FAERS Safety Report 6670578-6 (Version None)
Quarter: 2010Q2

REPORT INFORMATION
  Report Type: 
  Country: None (occurrence: None)
  Receive Date: 20100407
  Receipt Date: 20100324
  Transmission Date: 20101027
  Serious: Yes (Other)
  Sender: FDA-Public Use
  Company Number: US-SOLVAY-00210001815

PATIENT
  Age: 51 Year
  Sex: Male
  Weight: 106.81 kg

DRUGS (6)
  1. TYLENOL-500 [Concomitant]
     Indication: PAIN
     Dosage: DAILY DOSE:  UNKNOWN
     Route: 048
  2. TRAMADOL [Concomitant]
     Indication: PAIN
     Dosage: DAILY DOSE:  UNKNOWN
     Route: 048
  3. LYRICA [Concomitant]
     Indication: FIBROMYALGIA
     Dosage: DAILY DOSE:  UNKNOWN
     Route: 048
  4. ANDROGEL [Suspect]
     Indication: BLOOD TESTOSTERONE DECREASED
     Dosage: DAILY DOSE: 5 GRAM(S), VIA PUMP
     Route: 062
     Dates: start: 20080101, end: 20091001
  5. ANDROGEL [Suspect]
     Dosage: DAILY DOSE: 10 GRAM(S), VIA PUMP
     Route: 062
     Dates: start: 20091001, end: 20100201
  6. ANDROGEL [Suspect]
     Dosage: DAILY DOSE: 10 GRAM(S), VIA PUMP, 5 GM EACH MORNING AND 5 GM EACH EVENING
     Route: 062
     Dates: start: 20100201

REACTIONS (4)
  - ANXIETY [None]
  - BLOOD CORTICOSTERONE DECREASED [None]
  - BLOOD TESTOSTERONE DECREASED [None]
  - PRECANCEROUS SKIN LESION [None]
